FAERS Safety Report 24267185 (Version 1)
Quarter: 2024Q3

REPORT INFORMATION
  Report Type: Spontaneous
  Country: US (occurrence: US)
  Receive Date: 20240830
  Receipt Date: 20240830
  Transmission Date: 20241017
  Serious: No
  Sender: BRISTOL MYERS SQUIBB
  Company Number: US-BRISTOL-MYERS SQUIBB COMPANY-2024-137616

PATIENT
  Age: 86 Year
  Sex: Female
  Weight: 58.06 kg

DRUGS (1)
  1. POMALYST [Suspect]
     Active Substance: POMALIDOMIDE
     Indication: Plasma cell myeloma
     Dosage: ONCE DAILY, DAYS 1-7, THEN 21 DAYS OFF EVERY 28 DAYS
     Route: 048

REACTIONS (3)
  - Asthenia [Unknown]
  - Urinary tract infection [Unknown]
  - Off label use [Unknown]
